FAERS Safety Report 9182664 (Version 1)
Quarter: 2012Q4

REPORT INFORMATION
  Report Type: 
  Country: US (occurrence: US)
  Receive Date: 20121030
  Receipt Date: 20121030
  Transmission Date: 20130627
  Serious: No
  Sender: FDA-Public Use
  Company Number: US-009507513-1210USA012875

PATIENT

DRUGS (2)
  1. EMEND [Suspect]
     Indication: NAUSEA
     Dosage: 150 mg, Once
     Route: 042
     Dates: start: 20121025
  2. EMEND [Suspect]
     Indication: VOMITING

REACTIONS (1)
  - Infusion site extravasation [Unknown]
